FAERS Safety Report 6087577-8 (Version None)
Quarter: 2009Q1

REPORT INFORMATION
  Report Type: 
  Country: None (occurrence: None)
  Receive Date: 20090223
  Receipt Date: 20090217
  Transmission Date: 20090719
  Serious: Yes (Death, Hospitalization)
  Sender: FDA-Public Use
  Company Number: US-NOVOPROD-284215

PATIENT
  Age: 2 Year
  Sex: Female
  Weight: 10.884 kg

DRUGS (2)
  1. NOVOSEVEN RT [Suspect]
     Indication: INTRA-ABDOMINAL HAEMORRHAGE
     Dosage: 1 MG, QID (EVERY 6 HOURS)
     Route: 042
     Dates: start: 20081103, end: 20081111
  2. BLOOD AND RELATED PRODUCTS [Concomitant]
     Indication: INTRA-ABDOMINAL HAEMORRHAGE
     Dosage: UNKNOWN
     Dates: start: 20081031

REACTIONS (1)
  - CARDIOPULMONARY FAILURE [None]
